FAERS Safety Report 16093676 (Version 1)
Quarter: 2019Q1

REPORT INFORMATION
  Report Type: Spontaneous
  Country: US (occurrence: US)
  Receive Date: 20190320
  Receipt Date: 20190320
  Transmission Date: 20190418
  Serious: No
  Sender: FDA-Public Use
  Company Number: US-ELI_LILLY_AND_COMPANY-US201903002997

PATIENT
  Sex: Female

DRUGS (1)
  1. HUMALOG [Suspect]
     Active Substance: INSULIN LISPRO
     Indication: TYPE 2 DIABETES MELLITUS
     Dosage: 30 IU, UNKNOWN
     Route: 058

REACTIONS (3)
  - Blood glucose abnormal [Not Recovered/Not Resolved]
  - Insulin resistance [Not Recovered/Not Resolved]
  - Impaired gastric emptying [Not Recovered/Not Resolved]
